FAERS Safety Report 4475954-8 (Version None)
Quarter: 2004Q3

REPORT INFORMATION
  Report Type: 
  Country: None (occurrence: None)
  Receive Date: 20040923
  Receipt Date: 20040709
  Transmission Date: 20050211
  Serious: No
  Sender: FDA-Public Use
  Company Number: USA040772305

PATIENT
  Age: 60 Year
  Sex: Female

DRUGS (9)
  1. FORTEO [Suspect]
     Indication: OSTEOPOROSIS
     Dates: start: 20040701
  2. PREVACID [Concomitant]
  3. PREDNISONE [Concomitant]
  4. PLAQUENIL (HYDROYCHLOROQUINE SULFATE) [Concomitant]
  5. TRIAMTERENE [Concomitant]
  6. CALCIUM WITH VITAMIN D [Concomitant]
  7. PULMICORT [Concomitant]
  8. SEREVENT [Concomitant]
  9. TYLENOL [Concomitant]

REACTIONS (2)
  - FATIGUE [None]
  - SOMNOLENCE [None]
